FAERS Safety Report 9153861 (Version 1)
Quarter: 2013Q1

REPORT INFORMATION
  Report Type: Spontaneous
  Country: CN (occurrence: CN)
  Receive Date: 20130311
  Receipt Date: 20130311
  Transmission Date: 20140127
  Serious: Yes (Other)
  Sender: FDA-Public Use
  Company Number: CN-JNJFOC-20130217092

PATIENT
  Sex: Female

DRUGS (2)
  1. RISPERDAL [Suspect]
     Indication: SCHIZOPHRENIA
     Route: 048
     Dates: start: 20130226
  2. RISPERDAL [Suspect]
     Indication: SCHIZOPHRENIA
     Dosage: 1MGX20
     Route: 048

REACTIONS (2)
  - Suicide attempt [Unknown]
  - Intentional overdose [Unknown]
